FAERS Safety Report 11391935 (Version 2)
Quarter: 2015Q3

REPORT INFORMATION
  Report Type: Spontaneous
  Country: CN (occurrence: CN)
  Receive Date: 20150818
  Receipt Date: 20150821
  Transmission Date: 20151125
  Serious: Yes (Other)
  Sender: FDA-Public Use
  Company Number: CN-009507513-1508CHN006932

PATIENT
  Sex: Female

DRUGS (1)
  1. MARVELON [Suspect]
     Active Substance: DESOGESTREL\ETHINYL ESTRADIOL
     Dosage: UNK
     Route: 048

REACTIONS (8)
  - Discomfort [Recovered/Resolved]
  - Hypomenorrhoea [Unknown]
  - Maternal exposure before pregnancy [Recovered/Resolved]
  - Breast hyperplasia [Unknown]
  - Withdrawal bleed [Unknown]
  - Drug dose omission [Unknown]
  - Abortion induced [Unknown]
  - Breast pain [Unknown]
